FAERS Safety Report 6567387-5 (Version None)
Quarter: 2010Q1

REPORT INFORMATION
  Report Type: 
  Country: None (occurrence: None)
  Receive Date: 20100202
  Receipt Date: 20100128
  Transmission Date: 20100710
  Serious: Yes (Death)
  Sender: FDA-Public Use
  Company Number: PHEH2009US16999

PATIENT
  Sex: Male

DRUGS (1)
  1. NEORAL [Suspect]
     Indication: HEART TRANSPLANT
     Dosage: 125 MG, BID
     Route: 048

REACTIONS (1)
  - RENAL FAILURE [None]
